FAERS Safety Report 5424167-1 (Version None)
Quarter: 2007Q3

REPORT INFORMATION
  Report Type: 
  Country: None (occurrence: None)
  Receive Date: 20070823
  Receipt Date: 20070816
  Transmission Date: 20080115
  Serious: Yes (Hospitalization)
  Sender: FDA-Public Use
  Company Number: JP-ABBOTT-03P-087-0236236-00

PATIENT
  Sex: Male

DRUGS (27)
  1. KALETRA [Suspect]
     Indication: HIV INFECTION
     Route: 048
     Dates: start: 20020805, end: 20030728
  2. KALETRA [Suspect]
     Route: 048
     Dates: start: 20030827, end: 20061108
  3. CLARITHROMYCIN [Suspect]
     Indication: MYCOBACTERIUM AVIUM COMPLEX INFECTION
     Route: 048
     Dates: start: 20020723, end: 20020725
  4. CLARITHROMYCIN [Suspect]
     Route: 048
     Dates: start: 20021010, end: 20030728
  5. KALETRA [Suspect]
     Indication: HIV INFECTION
     Route: 048
     Dates: start: 20061109
  6. LAMIVUDINE [Suspect]
     Indication: HIV INFECTION
     Route: 048
     Dates: start: 20020805, end: 20030702
  7. LAMIVUDINE [Suspect]
     Route: 048
     Dates: start: 20030714, end: 20030728
  8. STAVUDINE [Suspect]
     Indication: HIV INFECTION
     Route: 048
     Dates: start: 20020805, end: 20030702
  9. LAMIVUDINE + ZIDOVUDINE [Suspect]
     Indication: HIV INFECTION
     Route: 048
     Dates: start: 20030703, end: 20030713
  10. LAMIVUDINE + ZIDOVUDINE [Suspect]
     Route: 048
     Dates: start: 20030827
  11. ABACAVIR [Suspect]
     Indication: HIV INFECTION
     Route: 048
     Dates: start: 20030714, end: 20030728
  12. AZITHROMYCIN [Concomitant]
     Indication: MYCOBACTERIUM AVIUM COMPLEX INFECTION
     Dates: start: 20020726, end: 20020822
  13. AZITHROMYCIN [Concomitant]
     Dates: start: 20020827, end: 20021009
  14. ETHAMBUTOL HYDROCHLORIDE [Concomitant]
     Indication: MYCOBACTERIUM AVIUM COMPLEX INFECTION
     Route: 048
     Dates: start: 20020723, end: 20020822
  15. ETHAMBUTOL HYDROCHLORIDE [Concomitant]
     Route: 048
     Dates: start: 20020827
  16. SPARFLOXACIN [Concomitant]
     Indication: MYCOBACTERIUM AVIUM COMPLEX INFECTION
     Route: 048
     Dates: start: 20020827
  17. HYDROCORTISONE [Concomitant]
     Indication: ADRENAL INSUFFICIENCY
     Dates: start: 20020801, end: 20020819
  18. HYDROCORTISONE [Concomitant]
     Dates: start: 20020820, end: 20020912
  19. PREDNISOLONE [Concomitant]
     Indication: ADRENAL INSUFFICIENCY
     Dosage: 15-30 MG
     Dates: start: 20020913
  20. GANCICLOVIR [Concomitant]
     Indication: CYTOMEGALOVIRUS CHORIORETINITIS
     Route: 042
     Dates: start: 20020715, end: 20020902
  21. GANCICLOVIR [Concomitant]
     Route: 042
     Dates: start: 20020903, end: 20020908
  22. THIAMAZOLE [Concomitant]
     Indication: HYPERTHYROIDISM
     Route: 048
     Dates: start: 20060911, end: 20070117
  23. THIAMAZOLE [Concomitant]
     Route: 048
     Dates: start: 20060118, end: 20070221
  24. THIAMAZOLE [Concomitant]
     Route: 048
     Dates: start: 20070222
  25. PROPRANOLOL HYDROCHLORIDE [Concomitant]
     Indication: HYPERTHYROIDISM
     Route: 048
     Dates: start: 20060911, end: 20070117
  26. BACTRIM [Concomitant]
     Indication: CEREBRAL TOXOPLASMOSIS
     Route: 048
     Dates: start: 20030708, end: 20030714
  27. BACTRIM [Concomitant]
     Indication: ANTIFUNGAL PROPHYLAXIS
     Route: 048
     Dates: start: 20040401, end: 20050511

REACTIONS (9)
  - ALANINE AMINOTRANSFERASE INCREASED [None]
  - ASPARTATE AMINOTRANSFERASE INCREASED [None]
  - ATYPICAL MYCOBACTERIAL INFECTION [None]
  - CYTOMEGALOVIRUS CHORIORETINITIS [None]
  - HEPATIC FUNCTION ABNORMAL [None]
  - HYPERLIPIDAEMIA [None]
  - IMMUNE RECONSTITUTION SYNDROME [None]
  - NUCLEAR MAGNETIC RESONANCE IMAGING ABNORMAL [None]
  - WHITE BLOOD CELL COUNT DECREASED [None]
